FAERS Safety Report 7623196-7 (Version None)
Quarter: 2011Q3

REPORT INFORMATION
  Report Type: 
  Country: None (occurrence: None)
  Receive Date: 20110720
  Receipt Date: 20110714
  Transmission Date: 20111222
  Serious: Yes (Death, Other)
  Sender: FDA-Public Use
  Company Number: PHHY2011DE46188

PATIENT
  Age: 80 Year
  Sex: Female

DRUGS (4)
  1. EXELON [Suspect]
     Indication: DEMENTIA
     Dosage: 9.5 MG/ 24 HRS
     Route: 062
     Dates: start: 20110329
  2. PARKINSAN [Concomitant]
     Dosage: 30 MG, QD
     Route: 048
  3. ISICOM [Concomitant]
     Route: 048
  4. PARKOTIL [Concomitant]
     Dosage: 2 MG, QD
     Route: 048

REACTIONS (5)
  - FALL [None]
  - ARRHYTHMIA [None]
  - DEATH [None]
  - NECK INJURY [None]
  - PARAPLEGIA [None]
